FAERS Safety Report 23627217 (Version 1)
Quarter: 2024Q1

REPORT INFORMATION
  Report Type: Report from Study
  Country: US (occurrence: US)
  Receive Date: 20240313
  Receipt Date: 20240313
  Transmission Date: 20240409
  Serious: No
  Sender: FDA-Public Use
  Company Number: US-SPRINGWORKS THERAPEUTICS-SW-001228

PATIENT
  Age: 27 Year
  Sex: Male

DRUGS (2)
  1. NIROGACESTAT [Suspect]
     Active Substance: NIROGACESTAT
     Indication: Product used for unknown indication
     Dosage: 50 MILLIGRAM, BID
     Route: 048
     Dates: start: 20240111
  2. SULINDAC [Suspect]
     Active Substance: SULINDAC
     Indication: Product used for unknown indication

REACTIONS (4)
  - Paraesthesia oral [Recovered/Resolved]
  - Drug interaction [Recovered/Resolved]
  - Skin exfoliation [Unknown]
  - Haemoptysis [Unknown]

NARRATIVE: CASE EVENT DATE: 20240113
